FAERS Safety Report 5681443-5 (Version None)
Quarter: 2008Q1

REPORT INFORMATION
  Report Type: 
  Country: None (occurrence: None)
  Receive Date: 20080326
  Receipt Date: 20070205
  Transmission Date: 20080703
  Serious: No
  Sender: FDA-Public Use
  Company Number: US-BAYER-US-2007-004082

PATIENT
  Age: 53 Year
  Sex: Female

DRUGS (3)
  1. MIRENA [Suspect]
     Indication: VAGINAL HAEMORRHAGE
     Route: 015
     Dates: start: 20070109, end: 20070129
  2. LISINOPRIL [Concomitant]
  3. HYDROCHLOROTHIAZIDE [Concomitant]

REACTIONS (4)
  - BACK PAIN [None]
  - GAIT DISTURBANCE [None]
  - PELVIC PAIN [None]
  - VAGINAL HAEMORRHAGE [None]
